FAERS Safety Report 8421646-X (Version None)
Quarter: 2012Q2

REPORT INFORMATION
  Report Type: 
  Country: None (occurrence: None)
  Receive Date: 20120608
  Receipt Date: 20120601
  Transmission Date: 20120825
  Serious: Yes (Disabling)
  Sender: FDA-Public Use
  Company Number: GB-ASTELLAS-2012EU003940

PATIENT
  Age: 72 Year
  Sex: Male

DRUGS (3)
  1. SOLIFENACIN SUCCINATE [Suspect]
     Dosage: UNK
     Route: 048
     Dates: start: 20110809, end: 20120425
  2. ASPIRIN [Concomitant]
     Dosage: UNK
     Route: 065
  3. SIMVASTATIN [Concomitant]
     Dosage: UNK
     Route: 065

REACTIONS (4)
  - DYSPNOEA [None]
  - DRY MOUTH [None]
  - FATIGUE [None]
  - PRODUCTIVE COUGH [None]
